FAERS Safety Report 6999240-7 (Version None)
Quarter: 2010Q3

REPORT INFORMATION
  Report Type: 
  Country: None (occurrence: None)
  Receive Date: 20100920
  Receipt Date: 20090824
  Transmission Date: 20110219
  Serious: Yes (Hospitalization)
  Sender: FDA-Public Use
  Company Number: US-ASTRAZENECA-2009UW21062

PATIENT
  Age: 57 Year
  Sex: Female
  Weight: 79.4 kg

DRUGS (7)
  1. SEROQUEL [Suspect]
     Indication: MENTAL DISORDER
     Dosage: 100-600 MG
     Route: 048
     Dates: start: 19990101, end: 20070101
  2. RISPERDAL [Concomitant]
     Dates: start: 19800101
  3. ZYPREXA [Concomitant]
  4. SYMBYAX [Concomitant]
  5. PAXIL [Concomitant]
  6. NEURONTIN [Concomitant]
  7. EFFEXOR [Concomitant]

REACTIONS (4)
  - BLOOD TRIGLYCERIDES INCREASED [None]
  - PANCREATITIS [None]
  - SOMNOLENCE [None]
  - TYPE 2 DIABETES MELLITUS [None]
